FAERS Safety Report 24852842 (Version 1)
Quarter: 2025Q1

REPORT INFORMATION
  Report Type: Report from Study
  Country: US (occurrence: US)
  Receive Date: 20250116
  Receipt Date: 20250116
  Transmission Date: 20250409
  Serious: Yes (Other)
  Sender: ABBVIE
  Company Number: US-ABBVIE-6087239

PATIENT
  Age: 50 Year
  Sex: Female

DRUGS (1)
  1. CREON [Suspect]
     Active Substance: PANCRELIPASE AMYLASE\PANCRELIPASE LIPASE\PANCRELIPASE PROTEASE
     Indication: Pancreatic failure
     Route: 048
     Dates: start: 20240501

REACTIONS (4)
  - Gastrointestinal haemorrhage [Recovered/Resolved]
  - Lithiasis [Recovered/Resolved with Sequelae]
  - Pancreatitis [Recovered/Resolved]
  - Incision site pruritus [Unknown]

NARRATIVE: CASE EVENT DATE: 20241012
